FAERS Safety Report 6154184-8 (Version None)
Quarter: 2009Q2

REPORT INFORMATION
  Report Type: 
  Country: None (occurrence: None)
  Receive Date: 20090414
  Receipt Date: 20090403
  Transmission Date: 20091009
  Serious: Yes (Other)
  Sender: FDA-Public Use
  Company Number: US-TYCO HEALTHCARE/MALLINCKRODT-T200900813

PATIENT
  Age: 66 Year
  Sex: Female

DRUGS (3)
  1. HYDROMORPHONE HCL [Suspect]
     Route: 042
  2. BUPIVACAINE [Concomitant]
     Route: 042
  3. DEXTROSE W/SODIUM CHLORIDE [Concomitant]
     Dosage: 100 CM^3/H

REACTIONS (1)
  - REVERSIBLE ISCHAEMIC NEUROLOGICAL DEFICIT [None]
